FAERS Safety Report 24764962 (Version 1)
Quarter: 2024Q4

REPORT INFORMATION
  Report Type: Spontaneous
  Country: JP (occurrence: JP)
  Receive Date: 20241223
  Receipt Date: 20241223
  Transmission Date: 20250115
  Serious: Yes (Hospitalization, Other)
  Sender: WOCKHARDT LIMITED
  Company Number: JP-WOCKHARDT LIMITED-2024WLD000070

PATIENT
  Age: 86 Year
  Sex: Female

DRUGS (2)
  1. CEFTRIAXONE [Suspect]
     Active Substance: CEFTRIAXONE
     Indication: Gastroenteritis bacterial
     Dosage: 1 GRAM
     Route: 065
  2. CEFTRIAXONE [Suspect]
     Active Substance: CEFTRIAXONE
     Dosage: 2 GRAM
     Route: 065

REACTIONS (1)
  - Encephalopathy [Recovered/Resolved]
